FAERS Safety Report 24662322 (Version 5)
Quarter: 2025Q1

REPORT INFORMATION
  Report Type: Report from Study
  Country: US (occurrence: US)
  Receive Date: 20241125
  Receipt Date: 20250319
  Transmission Date: 20250408
  Serious: No
  Sender: SUNOVION
  Company Number: US-SUMITOMO PHARMA SWITZERLAND GMBH-2024SPA005171

PATIENT

DRUGS (1)
  1. ORGOVYX [Suspect]
     Active Substance: RELUGOLIX
     Indication: Prostate cancer
     Dosage: 120 MG, QD
     Route: 048
     Dates: start: 20241107

REACTIONS (12)
  - Therapeutic procedure [Unknown]
  - Sinus disorder [Unknown]
  - Balance disorder [Unknown]
  - Presyncope [Unknown]
  - Dyspnoea [Unknown]
  - Visual impairment [Unknown]
  - Night sweats [Unknown]
  - Decreased activity [Unknown]
  - Incorrect dose administered [Unknown]
  - Dizziness [Unknown]
  - Hot flush [Recovered/Resolved]
  - Hot flush [Unknown]
